FAERS Safety Report 5041717-8 (Version None)
Quarter: 2006Q2

REPORT INFORMATION
  Report Type: 
  Country: None (occurrence: None)
  Receive Date: 20060630
  Receipt Date: 20060623
  Transmission Date: 20061013
  Serious: Yes (Other)
  Sender: FDA-Public Use
  Company Number: 2006079567

PATIENT
  Age: 64 Year
  Sex: Female
  Weight: 70.3075 kg

DRUGS (6)
  1. LIPITOR [Suspect]
     Indication: BLOOD CHOLESTEROL
     Dosage: 20 MG (20 MG, 1 IN 1 D) 6-7 YEARS AGO -
     Dates: end: 20060609
  2. THYROID TAB [Concomitant]
  3. MULTIVITAMINS, COMBINATIONS (MULTIVITAMINS, COMBINATIONS) [Concomitant]
  4. KLONOPIN [Concomitant]
  5. CYMBALTA [Concomitant]
  6. ALL OTHER THERAPEUTIC PRODUCTS (ALL OTHER THERAPEUTIC PRODUCTS [Concomitant]

REACTIONS (3)
  - ARTHRALGIA [None]
  - BEDRIDDEN [None]
  - MYALGIA [None]
